FAERS Safety Report 25635078 (Version 1)
Quarter: 2025Q3

REPORT INFORMATION
  Report Type: Spontaneous
  Country: IN (occurrence: IN)
  Receive Date: 20250801
  Receipt Date: 20250801
  Transmission Date: 20251021
  Serious: Yes (Death, Hospitalization, Other)
  Sender: AMNEAL
  Company Number: IN-AMNEAL PHARMACEUTICALS-2025-AMRX-02864

PATIENT
  Age: 52 Year
  Sex: Female

DRUGS (5)
  1. CYCLOPHOSPHAMIDE [Suspect]
     Active Substance: CYCLOPHOSPHAMIDE
     Indication: Rhabdomyosarcoma
     Route: 065
  2. VINCRISTINE [Suspect]
     Active Substance: VINCRISTINE
     Indication: Rhabdomyosarcoma
     Route: 065
  3. DOXORUBICIN [Suspect]
     Active Substance: DOXORUBICIN
     Indication: Rhabdomyosarcoma
     Route: 065
  4. ETOPOSIDE [Suspect]
     Active Substance: ETOPOSIDE
     Indication: Rhabdomyosarcoma
     Route: 065
  5. IFOSFAMIDE [Suspect]
     Active Substance: IFOSFAMIDE
     Indication: Rhabdomyosarcoma
     Route: 065

REACTIONS (3)
  - Febrile neutropenia [Fatal]
  - Myelosuppression [Fatal]
  - Septic shock [Fatal]
